FAERS Safety Report 9980856 (Version 4)
Quarter: 2014Q2

REPORT INFORMATION
  Report Type: Spontaneous
  Country: US (occurrence: US)
  Receive Date: 20140307
  Receipt Date: 20140508
  Transmission Date: 20141212
  Serious: Yes (Hospitalization, Other)
  Sender: FDA-Public Use
  Company Number: US-JNJFOC-20140301115

PATIENT
  Age: 69 Year
  Sex: Female
  Weight: 76.2 kg

DRUGS (7)
  1. XARELTO [Suspect]
     Indication: THROMBOSIS PROPHYLAXIS
     Route: 048
     Dates: start: 20140122, end: 20140221
  2. XARELTO [Suspect]
     Indication: HIP ARTHROPLASTY
     Route: 048
     Dates: start: 20140122, end: 20140221
  3. ASPIRIN [Suspect]
     Indication: PRODUCT USED FOR UNKNOWN INDICATION
     Route: 065
  4. ULTRAM [Concomitant]
     Indication: PAIN
     Dosage: DAILY IN MORNING
     Route: 048
     Dates: start: 201401, end: 20140209
  5. TRAMADOL [Concomitant]
     Indication: OSTEOARTHRITIS
     Route: 065
     Dates: start: 20140210
  6. VITAMIN [Concomitant]
     Route: 065
  7. CALCIUM AND VIT D [Concomitant]
     Route: 065

REACTIONS (5)
  - Transient ischaemic attack [Recovering/Resolving]
  - Neuropathy peripheral [Recovering/Resolving]
  - Contusion [Unknown]
  - Ecchymosis [Unknown]
  - Drug hypersensitivity [Unknown]
